FAERS Safety Report 21599170 (Version 4)
Quarter: 2023Q1

REPORT INFORMATION
  Report Type: Report from Study
  Country: US (occurrence: US)
  Receive Date: 20221115
  Receipt Date: 20230211
  Transmission Date: 20230418
  Serious: Yes (Other)
  Sender: FDA-Public Use
  Company Number: US-002147023-NVSC2022US255958

PATIENT
  Sex: Male

DRUGS (2)
  1. ENTRESTO [Suspect]
     Active Substance: SACUBITRIL\VALSARTAN
     Indication: Product used for unknown indication
     Dosage: 1 DOSAGE FORM, BID
     Route: 048
     Dates: start: 202210
  2. ENTRESTO [Suspect]
     Active Substance: SACUBITRIL\VALSARTAN
     Dosage: UNK, QD
     Route: 065

REACTIONS (7)
  - Cardiac flutter [Unknown]
  - Weight decreased [Recovering/Resolving]
  - Nausea [Unknown]
  - Fatigue [Unknown]
  - Fall [Unknown]
  - Pruritus [Unknown]
  - Inappropriate schedule of product administration [Unknown]
